FAERS Safety Report 8531243-3 (Version None)
Quarter: 2012Q3

REPORT INFORMATION
  Report Type: 
  Country: None (occurrence: None)
  Receive Date: 20120723
  Receipt Date: 20120712
  Transmission Date: 20120928
  Serious: Yes (Hospitalization)
  Sender: FDA-Public Use
  Company Number: IT-ASTRAZENECA-2012SE46018

PATIENT
  Age: 33023 Day
  Sex: Female

DRUGS (6)
  1. NORVASC [Concomitant]
  2. RANEXA [Concomitant]
     Route: 048
  3. ALENDRONATE SODIUM [Concomitant]
     Dosage: 70 MG /70MCG
  4. ARIMIDEX [Suspect]
     Indication: BREAST CANCER
     Route: 048
     Dates: start: 20120524, end: 20120627
  5. OMEPRAZOLE [Concomitant]
  6. TICLOPIDINA [Concomitant]
     Route: 048

REACTIONS (3)
  - ERYTHEMA [None]
  - CONTUSION [None]
  - ECCHYMOSIS [None]
